FAERS Safety Report 8695894 (Version 2)
Quarter: 2013Q4

REPORT INFORMATION
  Report Type: Spontaneous
  Country: US (occurrence: US)
  Receive Date: 20120801
  Receipt Date: 20131106
  Transmission Date: 20140711
  Serious: Yes (Hospitalization, Other)
  Sender: FDA-Public Use
  Company Number: US-009507513-1207USA010608

PATIENT
  Age: 87 Year
  Sex: Male

DRUGS (10)
  1. ZOCOR [Suspect]
     Dosage: 20 MG, ONCE
     Route: 048
  2. CORDARONE [Suspect]
     Route: 048
  3. CORDARONE [Suspect]
     Dosage: 400 MG, 5 DAYS/7 DAYS
     Route: 048
  4. TRIATEC (RAMIPRIL) [Suspect]
     Dosage: 2.5 MG, ONCE
     Route: 048
  5. TRIATEC (RAMIPRIL) [Suspect]
     Dosage: UNK
     Route: 048
  6. LASILIX [Concomitant]
  7. PLAVIX [Concomitant]
  8. KARDEGIC [Concomitant]
  9. INEXIUM [Concomitant]
  10. ESCITALOPRAM OXALATE [Concomitant]

REACTIONS (3)
  - Head injury [Unknown]
  - Fall [Unknown]
  - Hepatitis [Unknown]
